FAERS Safety Report 7903502-6 (Version None)
Quarter: 2011Q4

REPORT INFORMATION
  Report Type: 
  Country: None (occurrence: None)
  Receive Date: 20111107
  Receipt Date: 20111026
  Transmission Date: 20120403
  Serious: Yes (Other)
  Sender: FDA-Public Use
  Company Number: ACO_27509_2011

PATIENT
  Age: 55 Year
  Sex: Male

DRUGS (7)
  1. COLACE (DOCUSATE SODIUM) [Concomitant]
  2. HYDROCHLOROTHIAZIDE [Concomitant]
  3. LISINOPRIL [Concomitant]
  4. AMPYRA [Suspect]
     Indication: GAIT DISTURBANCE
     Dosage: 10 MG, Q 12 HRS    10 MG, QD, ORAL
     Route: 048
     Dates: start: 20110806, end: 20110101
  5. AMPYRA [Suspect]
     Indication: GAIT DISTURBANCE
     Dosage: 10 MG, Q 12 HRS    10 MG, QD, ORAL
     Route: 048
     Dates: start: 20101013, end: 20110708
  6. BETASERON [Concomitant]
  7. AMANTADINE HCL [Concomitant]

REACTIONS (8)
  - CONVULSION [None]
  - CEREBRAL ATROPHY [None]
  - ANAEMIA [None]
  - INAPPROPRIATE SCHEDULE OF DRUG ADMINISTRATION [None]
  - GLOMERULAR FILTRATION RATE DECREASED [None]
  - BLOOD LACTIC ACID INCREASED [None]
  - BLOOD UREA INCREASED [None]
  - BLOOD GLUCOSE INCREASED [None]
